FAERS Safety Report 20998262 (Version 1)
Quarter: 2022Q3

REPORT INFORMATION
  Report Type: Report from Study
  Country: MX (occurrence: MX)
  Receive Date: 20220623
  Receipt Date: 20220623
  Transmission Date: 20221027
  Serious: Yes (Other)
  Sender: FDA-Public Use
  Company Number: MX-NOVARTISPH-PHHY2014MX046677

PATIENT
  Age: 64 Year
  Sex: Female
  Weight: 82 kg

DRUGS (3)
  1. ACLASTA [Suspect]
     Active Substance: ZOLEDRONIC ACID
     Indication: Osteoporosis
     Dosage: 5 MG/100 ML Q12MO
     Route: 042
     Dates: start: 200711
  2. ACLASTA [Suspect]
     Active Substance: ZOLEDRONIC ACID
     Dosage: 5 MG/100 ML, Q12MO
     Route: 042
     Dates: start: 201404
  3. ACLASTA [Suspect]
     Active Substance: ZOLEDRONIC ACID
     Dosage: 1 DOSAGE FORM, Q12MO (5 MG)
     Route: 042

REACTIONS (9)
  - Synovial rupture [Unknown]
  - Fall [Unknown]
  - Grip strength decreased [Unknown]
  - Pain in extremity [Recovered/Resolved with Sequelae]
  - Injection site injury [Not Recovered/Not Resolved]
  - Injection site pain [Not Recovered/Not Resolved]
  - Injection site discolouration [Not Recovered/Not Resolved]
  - Sciatica [Unknown]
  - Musculoskeletal discomfort [Not Recovered/Not Resolved]

NARRATIVE: CASE EVENT DATE: 20140401
